FAERS Safety Report 4376035-4 (Version None)
Quarter: 2004Q2

REPORT INFORMATION
  Report Type: 
  Country: None (occurrence: None)
  Receive Date: 20040611
  Receipt Date: 20020909
  Transmission Date: 20050107
  Serious: Yes (Hospitalization)
  Sender: FDA-Public Use
  Company Number: US-MERCK-0209USA00858

PATIENT
  Age: 76 Year
  Sex: Female

DRUGS (12)
  1. EXTRA STRENGTH TYLENOL [Concomitant]
     Route: 048
     Dates: start: 19970101
  2. TYLENOL PM [Concomitant]
     Route: 065
     Dates: start: 19970101
  3. FOSAMAX [Suspect]
     Indication: OSTEOPOROSIS
     Route: 048
     Dates: start: 20020701, end: 20040101
  4. FOSAMAX [Suspect]
     Route: 048
     Dates: start: 20040101
  5. CLOZAPINE [Concomitant]
     Route: 065
  6. PLAQUENIL [Concomitant]
     Route: 065
     Dates: start: 19970101
  7. LACTULOSE [Concomitant]
     Route: 065
     Dates: start: 20010101
  8. MIRALAX [Concomitant]
     Route: 065
     Dates: start: 20020701
  9. SEROQUEL [Concomitant]
     Route: 065
     Dates: start: 20010101
  10. SEROQUEL [Concomitant]
     Route: 065
     Dates: start: 20010101
  11. ACIPHEX [Concomitant]
     Route: 065
     Dates: start: 20020701
  12. VIOXX [Concomitant]
     Route: 048
     Dates: start: 20010101

REACTIONS (3)
  - ARTHRALGIA [None]
  - DEHYDRATION [None]
  - HOARSENESS [None]
